FAERS Safety Report 9969823 (Version 4)
Quarter: 2014Q2

REPORT INFORMATION
  Report Type: Spontaneous
  Country: FR (occurrence: FR)
  Receive Date: 20140306
  Receipt Date: 20140529
  Transmission Date: 20141212
  Serious: Yes (Other)
  Sender: FDA-Public Use
  Company Number: FR-ROCHE-1359416

PATIENT
  Age: 72 Year
  Sex: Female
  Weight: 64 kg

DRUGS (16)
  1. LUCENTIS [Suspect]
     Indication: AGE-RELATED MACULAR DEGENERATION
     Dosage: RIGHT EYE
     Route: 050
     Dates: start: 201303
  2. LUCENTIS [Suspect]
     Dosage: RIGHT EYE
     Route: 050
     Dates: start: 20130429
  3. LUCENTIS [Suspect]
     Dosage: RIGHT EYE
     Route: 050
     Dates: start: 201305
  4. LUCENTIS [Suspect]
     Dosage: RIGHT EYE
     Route: 050
     Dates: start: 20130912
  5. LUCENTIS [Suspect]
     Dosage: LEFT EYE
     Route: 050
     Dates: start: 20131209
  6. LATEX [Concomitant]
     Indication: ECZEMA
  7. VERSATIS [Concomitant]
  8. COSOPT [Concomitant]
     Indication: OPEN ANGLE GLAUCOMA
  9. CARTEOLOL HYDROCHLORIDE [Concomitant]
  10. MYDRIATICUM [Concomitant]
  11. AZYTER [Concomitant]
  12. OXYBUPROCAINE [Concomitant]
  13. TETRACAINE [Concomitant]
  14. BETADINE [Concomitant]
  15. CHIBROXINE [Concomitant]
  16. POVIDONE IODINE [Concomitant]

REACTIONS (8)
  - Hypersensitivity [Recovered/Resolved]
  - Presyncope [Unknown]
  - Intraocular pressure increased [Unknown]
  - Hypotension [Unknown]
  - Eye swelling [Unknown]
  - Eyelid sensory disorder [Unknown]
  - Insomnia [Unknown]
  - Erythema [Unknown]
